FAERS Safety Report 17860545 (Version 1)
Quarter: 2020Q2

REPORT INFORMATION
  Report Type: Spontaneous
  Country: US (occurrence: US)
  Receive Date: 20200604
  Receipt Date: 20200604
  Transmission Date: 20200714
  Serious: Yes (Hospitalization)
  Sender: FDA-Public Use
  Company Number: None

PATIENT
  Age: 15 Year
  Sex: Female
  Weight: 69.75 kg

DRUGS (1)
  1. DULOXETINE DR 30 MG CAPSULES, MFG SOLCO - GENERIC FOR CYMBALTA 30 MG [Suspect]
     Active Substance: DULOXETINE
     Indication: ANXIETY
     Dosage: ?          QUANTITY:3 CAPSULE(S);?
     Route: 048
     Dates: start: 20200210, end: 20200531

REACTIONS (3)
  - Loss of consciousness [None]
  - Conversion disorder [None]
  - Syncope [None]

NARRATIVE: CASE EVENT DATE: 20200301
